FAERS Safety Report 7500061-7 (Version None)
Quarter: 2011Q2

REPORT INFORMATION
  Report Type: 
  Country: None (occurrence: None)
  Receive Date: 20110524
  Receipt Date: 20110319
  Transmission Date: 20111010
  Serious: No
  Sender: FDA-Public Use
  Company Number: US-NOVEN-11US002112

PATIENT
  Sex: Male
  Weight: 74.83 kg

DRUGS (2)
  1. DAYTRANA [Suspect]
     Indication: ATTENTION DEFICIT/HYPERACTIVITY DISORDER
     Dosage: 10 MG, UNKNOWN
     Route: 062
     Dates: start: 20110318
  2. LIALDA [Concomitant]
     Indication: COLITIS ULCERATIVE
     Dosage: 1.2 G, 4 DAILY
     Route: 048
     Dates: start: 20101101

REACTIONS (5)
  - DRUG ADMINISTRATION ERROR [None]
  - INCORRECT DRUG ADMINISTRATION DURATION [None]
  - OFF LABEL USE [None]
  - PRODUCT QUALITY ISSUE [None]
  - NO ADVERSE EVENT [None]
